FAERS Safety Report 19213705 (Version 2)
Quarter: 2021Q3

REPORT INFORMATION
  Report Type: Report from Study
  Country: GB (occurrence: GB)
  Receive Date: 20210504
  Receipt Date: 20210712
  Transmission Date: 20211014
  Serious: Yes (Other)
  Sender: FDA-Public Use
  Company Number: NVSC2021GB096257

PATIENT
  Sex: Female

DRUGS (1)
  1. COSENTYX [Suspect]
     Active Substance: SECUKINUMAB
     Indication: ANKYLOSING SPONDYLITIS
     Dosage: 150 MG (WEEKS 0,1,2 AND 3 MONTHLY FROM WEEK 4 ONWORDS), QW
     Route: 058
     Dates: start: 20210409

REACTIONS (1)
  - Mental impairment [Unknown]
